FAERS Safety Report 19238210 (Version 1)
Quarter: 2021Q2

REPORT INFORMATION
  Report Type: Spontaneous
  Country: US (occurrence: US)
  Receive Date: 20210510
  Receipt Date: 20210510
  Transmission Date: 20210717
  Serious: No
  Sender: FDA-Public Use
  Company Number: US-GLENMARK PHARMACEUTICALS-2021GMK051947

PATIENT

DRUGS (1)
  1. CLOBETASOL PROPIONATE TOPICAL SOLUTION USP, 0.05% [Suspect]
     Active Substance: CLOBETASOL PROPIONATE
     Indication: HAIR DISORDER
     Dosage: UNK, QD (DURATION: 2 WEEKS AND 3 DAYS)
     Route: 061
     Dates: start: 20210110

REACTIONS (3)
  - Product use in unapproved indication [Unknown]
  - No adverse event [Unknown]
  - Intentional product use issue [Unknown]

NARRATIVE: CASE EVENT DATE: 20210110
